FAERS Safety Report 8513236-5 (Version None)
Quarter: 2012Q3

REPORT INFORMATION
  Report Type: 
  Country: None (occurrence: None)
  Receive Date: 20120716
  Receipt Date: 20120710
  Transmission Date: 20120928
  Serious: Yes (Other)
  Sender: FDA-Public Use
  Company Number: CA-BAYER-2012-060066

PATIENT
  Age: 26 Year
  Sex: Female

DRUGS (1)
  1. MIRENA [Suspect]
     Dosage: 20 MCG/24HR, CONT
     Route: 015
     Dates: start: 20090101

REACTIONS (8)
  - ABDOMINAL PAIN UPPER [None]
  - BREAST PAIN [None]
  - NAUSEA [None]
  - FATIGUE [None]
  - MEDICAL DEVICE DISCOMFORT [None]
  - ABORTION SPONTANEOUS [None]
  - PREGNANCY WITH CONTRACEPTIVE DEVICE [None]
  - POST ABORTION HAEMORRHAGE [None]
